FAERS Safety Report 14617034 (Version 2)
Quarter: 2018Q4

REPORT INFORMATION
  Report Type: Spontaneous
  Country: DE (occurrence: DE)
  Receive Date: 20180309
  Receipt Date: 20181102
  Transmission Date: 20190204
  Serious: Yes (Other)
  Sender: FDA-Public Use
  Company Number: PHHY2018DE038273

PATIENT

DRUGS (2)
  1. REVOLADE [Suspect]
     Active Substance: ELTROMBOPAG
     Indication: IMMUNE THROMBOCYTOPENIC PURPURA
     Dosage: 25 MG, QD
     Route: 048
     Dates: start: 20170809, end: 20171222
  2. REVOLADE [Suspect]
     Active Substance: ELTROMBOPAG
     Dosage: UNK
     Route: 048
     Dates: start: 201803

REACTIONS (2)
  - Renal impairment [Recovering/Resolving]
  - Blood creatinine increased [Unknown]

NARRATIVE: CASE EVENT DATE: 20171212
